FAERS Safety Report 7069382-9 (Version None)
Quarter: 2010Q4

REPORT INFORMATION
  Report Type: 
  Country: None (occurrence: None)
  Receive Date: 20101028
  Receipt Date: 20101012
  Transmission Date: 20110411
  Serious: Yes (Hospitalization)
  Sender: FDA-Public Use
  Company Number: CO-AMGEN-COLCT2010000201

PATIENT

DRUGS (3)
  1. ETANERCEPT [Suspect]
     Indication: PRODUCT USED FOR UNKNOWN INDICATION
     Dosage: 25 MG, 2 TIMES/WK
     Route: 058
     Dates: start: 20091001, end: 20100507
  2. PREDNISOLONE [Suspect]
     Indication: PRODUCT USED FOR UNKNOWN INDICATION
     Dosage: UNKNOWN
     Route: 048
     Dates: start: 20030101
  3. ACETAMINOPHEN [Concomitant]
     Indication: PAIN
     Dosage: 500 MG

REACTIONS (4)
  - BRAIN NEOPLASM [None]
  - CEREBROVASCULAR ACCIDENT [None]
  - COMA [None]
  - HYPERTENSION [None]
